FAERS Safety Report 17332348 (Version 1)
Quarter: 2020Q1

REPORT INFORMATION
  Report Type: Report from Study
  Country: JP (occurrence: JP)
  Receive Date: 20200127
  Receipt Date: 20200127
  Transmission Date: 20200409
  Serious: Yes (Other)
  Sender: FDA-Public Use
  Company Number: JP-AUROBINDO-AUR-APL-2020-004040

PATIENT
  Age: 55 Year
  Sex: Male
  Weight: 62.3 kg

DRUGS (40)
  1. LEUCOVORIN. [Concomitant]
     Active Substance: LEUCOVORIN
     Indication: PROPHYLAXIS
     Dosage: 15 MILLIGRAM, ONCE A DAY
     Route: 048
     Dates: start: 20191018, end: 20191019
  2. LEUCOVORIN. [Concomitant]
     Active Substance: LEUCOVORIN
     Dosage: 15 MILLIGRAM, ONCE A DAY
     Route: 048
     Dates: start: 20191101, end: 20191102
  3. MAGNESIUM OXIDE. [Concomitant]
     Active Substance: MAGNESIUM OXIDE
     Dosage: 750 MILLIGRAM, ONCE A DAY
     Route: 048
     Dates: start: 20190905
  4. GRANISETRON HYDROCHLORIDE. [Concomitant]
     Active Substance: GRANISETRON HYDROCHLORIDE
     Indication: PROPHYLAXIS OF NAUSEA AND VOMITING
     Dosage: 3 MILLIGRAM, EVERY WEEK
     Route: 042
     Dates: start: 20190829, end: 20191003
  5. OXINORM [Concomitant]
     Indication: CANCER PAIN
     Dosage: 5 MILLIGRAM, AS NEEDED
     Route: 048
  6. FOLOTYN [Suspect]
     Active Substance: PRALATREXATE
     Indication: ANAPLASTIC LARGE-CELL LYMPHOMA
     Dosage: 30 MILLIGRAM/SQ. METER
     Route: 042
     Dates: start: 20190829
  7. LEUCOVORIN. [Concomitant]
     Active Substance: LEUCOVORIN
     Dosage: 6 DOSAGE FORM, ONCE A DAY
     Route: 048
     Dates: start: 20190928, end: 20190928
  8. OXYCONTIN [Concomitant]
     Active Substance: OXYCODONE HYDROCHLORIDE
     Indication: CANCER PAIN
     Dosage: 10 MILLIGRAM, AS NEEDED
     Route: 048
  9. PANVITAN [Concomitant]
     Active Substance: VITAMINS
     Indication: PROPHYLAXIS
     Dosage: 2 GRAM, ONCE A DAY
     Route: 048
     Dates: start: 20190821
  10. FRESMIN S [Concomitant]
     Active Substance: HYDROXOCOBALAMIN
     Indication: PROPHYLAXIS
     Dosage: 1 MILLIGRAM
     Route: 042
     Dates: start: 20190821
  11. LEUCOVORIN. [Concomitant]
     Active Substance: LEUCOVORIN
     Dosage: 6 DOSAGE FORM, ONCE A DAY
     Route: 048
     Dates: start: 20190906, end: 20190906
  12. LEUCOVORIN. [Concomitant]
     Active Substance: LEUCOVORIN
     Dosage: 12 DOSAGE FORM, ONCE A DAY
     Route: 048
     Dates: start: 20190907, end: 20190907
  13. LEUCOVORIN. [Concomitant]
     Active Substance: LEUCOVORIN
     Dosage: 6 DOSAGE FORM, ONCE A DAY
     Route: 048
     Dates: start: 20190915, end: 20190915
  14. LEUCOVORIN. [Concomitant]
     Active Substance: LEUCOVORIN
     Dosage: 12 DOSAGE FORM, ONCE A DAY
     Route: 048
     Dates: start: 20191005, end: 20191005
  15. FOLOTYN [Suspect]
     Active Substance: PRALATREXATE
     Dosage: 30 MILLIGRAM/SQ. METER
     Route: 042
     Dates: start: 20190919
  16. FOLOTYN [Suspect]
     Active Substance: PRALATREXATE
     Dosage: 30 MILLIGRAM/SQ. METER
     Route: 042
     Dates: start: 20191010
  17. FRESMIN S [Concomitant]
     Active Substance: HYDROXOCOBALAMIN
     Dosage: 1 MILLIGRAM
     Route: 042
     Dates: start: 20191003
  18. LEUCOVORIN. [Concomitant]
     Active Substance: LEUCOVORIN
     Indication: PRODUCT USED FOR UNKNOWN INDICATION
     Dosage: 15 DOSAGE FORM, ONCE A DAY
     Route: 048
     Dates: start: 20190830, end: 20190830
  19. CALONAL [Concomitant]
     Active Substance: ACETAMINOPHEN
     Indication: CANCER PAIN
     Dosage: 1500 MILLIGRAM, ONCE A DAY
     Route: 048
  20. SENNOSIDE [Concomitant]
     Active Substance: SENNOSIDES
     Indication: CONSTIPATION
     Dosage: 12 MILLIGRAM, AS NEEDED
     Route: 048
     Dates: start: 20190919
  21. BAKTAR [Concomitant]
     Active Substance: SULFAMETHOXAZOLE\TRIMETHOPRIM
     Indication: INFECTION PROPHYLAXIS
     Dosage: 1 DOSAGE FORM, ONCE A DAY
     Route: 048
     Dates: start: 20191017
  22. LEUCOVORIN. [Concomitant]
     Active Substance: LEUCOVORIN
     Dosage: 6 DOSAGE FORM, ONCE A DAY
     Route: 048
     Dates: start: 20190920, end: 20190920
  23. LEUCOVORIN. [Concomitant]
     Active Substance: LEUCOVORIN
     Dosage: 6 DOSAGE FORM, ONCE A DAY
     Route: 048
     Dates: start: 20190927, end: 20190927
  24. LEUCOVORIN. [Concomitant]
     Active Substance: LEUCOVORIN
     Dosage: 6 DOSAGE FORM, ONCE A DAY
     Route: 048
     Dates: start: 20190929, end: 20190929
  25. GRANISETRON HYDROCHLORIDE. [Concomitant]
     Active Substance: GRANISETRON HYDROCHLORIDE
     Dosage: 3 MILLIGRAM, EVERY WEEK
     Route: 042
     Dates: start: 20191017
  26. FOLOTYN [Suspect]
     Active Substance: PRALATREXATE
     Dosage: 30 MILLIGRAM/SQ. METER
     Route: 042
     Dates: start: 20190926
  27. FOLOTYN [Suspect]
     Active Substance: PRALATREXATE
     Dosage: UNK
     Route: 042
     Dates: start: 20191017
  28. LEUCOVORIN. [Concomitant]
     Active Substance: LEUCOVORIN
     Dosage: 15 DOSAGE FORM, ONCE A DAY
     Route: 048
     Dates: start: 20190831, end: 20190831
  29. LEUCOVORIN. [Concomitant]
     Active Substance: LEUCOVORIN
     Dosage: 6 DOSAGE FORM, ONCE A DAY
     Route: 048
     Dates: start: 20190913, end: 20190913
  30. LEUCOVORIN. [Concomitant]
     Active Substance: LEUCOVORIN
     Dosage: 6 DOSAGE FORM, ONCE A DAY
     Route: 048
     Dates: start: 20190914, end: 20190914
  31. LEUCOVORIN. [Concomitant]
     Active Substance: LEUCOVORIN
     Dosage: 3 DOSAGE FORM, ONCE A DAY
     Route: 048
     Dates: start: 20190922, end: 20190922
  32. LEUCOVORIN. [Concomitant]
     Active Substance: LEUCOVORIN
     Dosage: 15 MILLIGRAM, ONCE A DAY
     Route: 048
     Dates: start: 20191025, end: 20191026
  33. FOLOTYN [Suspect]
     Active Substance: PRALATREXATE
     Dosage: 30 MILLIGRAM/SQ. METER
     Route: 042
     Dates: start: 20190905
  34. FOLOTYN [Suspect]
     Active Substance: PRALATREXATE
     Dosage: 30 MILLIGRAM/SQ. METER
     Route: 042
     Dates: start: 20190912
  35. FOLOTYN [Suspect]
     Active Substance: PRALATREXATE
     Dosage: 30 MILLIGRAM/SQ. METER
     Route: 042
     Dates: start: 20191003
  36. VICCLOX [Concomitant]
     Active Substance: ACYCLOVIR SODIUM
     Indication: INFECTION PROPHYLAXIS
     Dosage: 200 MILLIGRAM, ONCE A DAY
     Route: 048
     Dates: start: 20191017
  37. LEUCOVORIN. [Concomitant]
     Active Substance: LEUCOVORIN
     Dosage: 9 DOSAGE FORM, ONCE A DAY
     Route: 048
     Dates: start: 20190921, end: 20190921
  38. LEUCOVORIN. [Concomitant]
     Active Substance: LEUCOVORIN
     Dosage: 6 DOSAGE FORM, ONCE A DAY
     Route: 048
     Dates: start: 20191004, end: 20191004
  39. FAMOTIDINE. [Concomitant]
     Active Substance: FAMOTIDINE
     Indication: GASTRIC ULCER
     Dosage: 40 MILLIGRAM, ONCE A DAY
     Route: 048
  40. MAGNESIUM OXIDE. [Concomitant]
     Active Substance: MAGNESIUM OXIDE
     Indication: CONSTIPATION
     Dosage: 750 MILLIGRAM, ONCE A DAY
     Route: 048
     Dates: end: 20190827

REACTIONS (2)
  - Malignant neoplasm progression [Unknown]
  - Pruritus [Not Recovered/Not Resolved]

NARRATIVE: CASE EVENT DATE: 20191010
